FAERS Safety Report 6136761-3 (Version None)
Quarter: 2009Q1

REPORT INFORMATION
  Report Type: 
  Country: None (occurrence: None)
  Receive Date: 20090330
  Receipt Date: 20090319
  Transmission Date: 20090719
  Serious: Yes (Other)
  Sender: FDA-Public Use
  Company Number: AR-PFIZER INC-2009185638

PATIENT

DRUGS (6)
  1. MARAVIROC [Suspect]
     Indication: HIV INFECTION
     Dosage: 300 MG, 2X/DAY
     Route: 048
     Dates: start: 20060119
  2. COMBIVIR [Suspect]
     Indication: HIV INFECTION
     Dosage: 450 MG, 2X/DAY
     Route: 048
     Dates: start: 20060119
  3. DICLOFENAC [Concomitant]
     Dosage: UNK
     Route: 048
     Dates: start: 20060717
  4. RANITIDINE [Concomitant]
     Dosage: UNK
     Route: 048
     Dates: start: 20081223
  5. MYLANTA [Concomitant]
     Dosage: UNK
     Route: 048
     Dates: start: 20081223
  6. LANSOPRAZOL [Concomitant]
     Dosage: UNK
     Route: 048
     Dates: start: 20081231, end: 20090103

REACTIONS (1)
  - HODGKIN'S DISEASE [None]
